FAERS Safety Report 8413908-7 (Version None)
Quarter: 2012Q2

REPORT INFORMATION
  Report Type: 
  Country: None (occurrence: None)
  Receive Date: 20120323
  Receipt Date: 20110825
  Transmission Date: 20120825
  Serious: Yes (Disabling)
  Sender: FDA-Public Use
  Company Number: 163-21880-11022808

PATIENT
  Age: 71 Year
  Sex: Male

DRUGS (4)
  1. DESMOPRESSIN (DESMOPRESSIN) (SPRAY (NOT INHALATION)) [Concomitant]
  2. ZOMETA [Concomitant]
  3. REVLIMID [Suspect]
     Indication: MULTIPLE MYELOMA
     Dosage: 25 MG, 1 IN 1 D, PO 25 MG, DAYS 1-21, PO
     Route: 048
     Dates: start: 20100601
  4. REVLIMID [Suspect]
     Indication: MULTIPLE MYELOMA
     Dosage: 25 MG, 1 IN 1 D, PO 25 MG, DAYS 1-21, PO
     Route: 048
     Dates: start: 20101001, end: 20110401

REACTIONS (3)
  - DYSGEUSIA [None]
  - WEIGHT DECREASED [None]
  - SINUSITIS [None]
